FAERS Safety Report 8195801-0 (Version None)
Quarter: 2012Q1

REPORT INFORMATION
  Report Type: 
  Country: None (occurrence: None)
  Receive Date: 20120308
  Receipt Date: 20120228
  Transmission Date: 20120608
  Serious: Yes (Life-Threatening, Hospitalization)
  Sender: FDA-Public Use
  Company Number: US-ELI_LILLY_AND_COMPANY-US201203000221

PATIENT
  Sex: Female

DRUGS (8)
  1. FORTEO [Suspect]
     Indication: OSTEOPOROSIS
     Dosage: 20 UG, QD
     Dates: start: 20120210
  2. MULTIVITAMIN [Concomitant]
     Dosage: 1 DF, QD
  3. ANALGESICS [Concomitant]
     Indication: PAIN
  4. ASPIRIN [Concomitant]
     Dosage: 81 MG, UNK
  5. MULTI-VITAMINS [Concomitant]
     Dosage: UNK UNK, QD
  6. MELOXICAM [Concomitant]
     Dosage: 15 MG, QD
  7. PRAVASTATIN [Concomitant]
     Dosage: 40 MG, QD
  8. OSCAL D                            /06435501/ [Concomitant]
     Dosage: 2 DF, QD

REACTIONS (5)
  - ENDOTRACHEAL INTUBATION [None]
  - NAUSEA [None]
  - SOMNOLENCE [None]
  - SPINAL ANAESTHESIA [None]
  - MEMORY IMPAIRMENT [None]
